FAERS Safety Report 22050776 (Version 2)
Quarter: 2023Q1

REPORT INFORMATION
  Report Type: Spontaneous
  Country: US (occurrence: US)
  Receive Date: 20230301
  Receipt Date: 20230307
  Transmission Date: 20230418
  Serious: Yes (Disabling, Other)
  Sender: FDA-Public Use
  Company Number: US-BRISTOL-MYERS SQUIBB COMPANY-2023-027882

PATIENT
  Age: 69 Year
  Sex: Female

DRUGS (4)
  1. ELIQUIS [Suspect]
     Active Substance: APIXABAN
     Indication: Product used for unknown indication
  2. OFEV [Suspect]
     Active Substance: NINTEDANIB
     Indication: Pulmonary fibrosis
     Dosage: WITH FOOD
     Route: 048
  3. OFEV [Suspect]
     Active Substance: NINTEDANIB
     Indication: Idiopathic pulmonary fibrosis
  4. OFEV [Suspect]
     Active Substance: NINTEDANIB
     Indication: Interstitial lung disease

REACTIONS (14)
  - Coagulopathy [Recovered/Resolved with Sequelae]
  - Ileus [Unknown]
  - Nasopharyngitis [Unknown]
  - Fatigue [Unknown]
  - Dyspnoea [Unknown]
  - Wheezing [Unknown]
  - Vomiting [Not Recovered/Not Resolved]
  - Nausea [Recovered/Resolved]
  - Diarrhoea [Not Recovered/Not Resolved]
  - Leukaemia [Unknown]
  - Gastric disorder [Unknown]
  - Tooth disorder [Unknown]
  - Frequent bowel movements [Unknown]
  - Product dose omission issue [Unknown]

NARRATIVE: CASE EVENT DATE: 20221101
